FAERS Safety Report 18809004 (Version 2)
Quarter: 2021Q1

REPORT INFORMATION
  Report Type: Spontaneous
  Country: DE (occurrence: DE)
  Receive Date: 20210129
  Receipt Date: 20210209
  Transmission Date: 20210419
  Serious: Yes (Other)
  Sender: FDA-Public Use
  Company Number: DE-PFIZER INC-2021060720

PATIENT
  Sex: Female

DRUGS (1)
  1. SORTIS [Suspect]
     Active Substance: ATORVASTATIN
     Indication: MYOCARDIAL INFARCTION
     Dosage: 5 MG
     Dates: start: 2011

REACTIONS (2)
  - Polyneuropathy [Unknown]
  - Muscle disorder [Recovered/Resolved]
